FAERS Safety Report 4609771-2 (Version None)
Quarter: 2005Q1

REPORT INFORMATION
  Report Type: 
  Country: None (occurrence: None)
  Receive Date: 20050314
  Receipt Date: 20050314
  Transmission Date: 20050727
  Serious: Yes (Hospitalization, Disabling, Other)
  Sender: FDA-Public Use
  Company Number: None

PATIENT
  Age: 32 Year
  Sex: Male
  Weight: 108.8633 kg

DRUGS (2)
  1. ZYPREXA [Suspect]
     Indication: THINKING ABNORMAL
  2. RISPERDAL [Suspect]
     Indication: THINKING ABNORMAL
     Dosage: EVERY TWO WKS BY INJ

REACTIONS (6)
  - ARTHRALGIA [None]
  - HYPOAESTHESIA [None]
  - INSOMNIA [None]
  - LIBIDO DISORDER [None]
  - NAIL DISORDER [None]
  - WEIGHT INCREASED [None]
